FAERS Safety Report 9693524 (Version 1)
Quarter: 2013Q4

REPORT INFORMATION
  Report Type: Spontaneous
  Country: US (occurrence: US)
  Receive Date: 20131118
  Receipt Date: 20131118
  Transmission Date: 20140711
  Serious: Yes (Hospitalization)
  Sender: FDA-Public Use
  Company Number: US-GLAXOSMITHKLINE-A1049474A

PATIENT
  Age: 53 Year
  Sex: Male

DRUGS (14)
  1. COREG [Suspect]
     Indication: PRODUCT USED FOR UNKNOWN INDICATION
     Dosage: 25MG TWICE PER DAY
     Route: 048
     Dates: start: 200705
  2. LISINOPRIL [Concomitant]
  3. COUMADIN [Concomitant]
  4. SPIRONOLACTONE [Concomitant]
  5. LASIX [Concomitant]
  6. DIGOXIN [Concomitant]
  7. PRAVASTATIN [Concomitant]
  8. CELEXA [Concomitant]
  9. VITAMIN B6 [Concomitant]
  10. VITAMIN D [Concomitant]
  11. MORPHINE [Concomitant]
  12. MUSCLE RELAXER [Concomitant]
  13. KLONOPIN [Concomitant]
  14. FLOMAX [Concomitant]

REACTIONS (3)
  - Hypotension [Unknown]
  - Heart rate increased [Unknown]
  - Cardiac enzymes increased [Unknown]
